FAERS Safety Report 6075811-X (Version None)
Quarter: 2009Q1

REPORT INFORMATION
  Report Type: 
  Country: None (occurrence: None)
  Receive Date: 20090209
  Receipt Date: 20090204
  Transmission Date: 20090719
  Serious: Yes (Death)
  Sender: FDA-Public Use
  Company Number: CERZ-1000475

PATIENT
  Age: 7 Year
  Sex: Female
  Weight: 17 kg

DRUGS (9)
  1. CEREZYME [Suspect]
     Indication: GAUCHER'S DISEASE
     Dosage: 120 U;KG, Q2W, INTRAVENOUS; 1000 U, Q2W INTRAVENOUS; 800 U, Q2W, INTRAVENOUS
     Route: 042
     Dates: start: 20030813, end: 20040824
  2. CEREZYME [Suspect]
     Indication: GAUCHER'S DISEASE
     Dosage: 120 U;KG, Q2W, INTRAVENOUS; 1000 U, Q2W INTRAVENOUS; 800 U, Q2W, INTRAVENOUS
     Route: 042
     Dates: start: 20040809, end: 20050915
  3. CEREZYME [Suspect]
     Indication: GAUCHER'S DISEASE
     Dosage: 120 U;KG, Q2W, INTRAVENOUS; 1000 U, Q2W INTRAVENOUS; 800 U, Q2W, INTRAVENOUS
     Route: 042
     Dates: start: 20050930, end: 20081227
  4. PHENOBARBITAL TAB [Concomitant]
  5. CLOBAZAM (CLOBAZAM) [Concomitant]
  6. DIAZEPAM [Concomitant]
  7. VALPROATE SODIUM [Concomitant]
  8. TAZANIDIINE HYDROCHLORIDE (TAZANIDINE HYDROCHLORIDE) [Concomitant]
  9. DANTROLENE SODIUM [Concomitant]

REACTIONS (5)
  - CARDIO-RESPIRATORY ARREST [None]
  - GAUCHER'S DISEASE [None]
  - HEART RATE INCREASED [None]
  - PYREXIA [None]
  - STATUS EPILEPTICUS [None]
